FAERS Safety Report 25057183 (Version 1)
Quarter: 2025Q1

REPORT INFORMATION
  Report Type: Spontaneous
  Country: RO (occurrence: RO)
  Receive Date: 20250310
  Receipt Date: 20250310
  Transmission Date: 20250409
  Serious: Yes (Hospitalization)
  Sender: IMMUNOCORE
  Company Number: RO-Medison-001048

PATIENT

DRUGS (1)
  1. TEBENTAFUSP [Suspect]
     Active Substance: TEBENTAFUSP
     Indication: Metastatic ocular melanoma
     Dates: start: 20250217

REACTIONS (13)
  - General physical health deterioration [Unknown]
  - Respiratory failure [Unknown]
  - Hepatic cytolysis [Unknown]
  - Hyperuricaemia [Unknown]
  - Leukocytosis [Unknown]
  - Inflammatory marker increased [Unknown]
  - Early satiety [Unknown]
  - Hypertension [Recovering/Resolving]
  - Fatigue [Unknown]
  - Asthenia [Unknown]
  - Decreased appetite [Unknown]
  - Blood creatinine increased [Unknown]
  - Nausea [Unknown]

NARRATIVE: CASE EVENT DATE: 20250217
